FAERS Safety Report 15851817 (Version 7)
Quarter: 2019Q3

REPORT INFORMATION
  Report Type: Spontaneous
  Country: DE (occurrence: DE)
  Receive Date: 20190122
  Receipt Date: 20190821
  Transmission Date: 20191004
  Serious: Yes (Death, Hospitalization, Other)
  Sender: FDA-Public Use
  Company Number: DE-AUROBINDO-AUR-APL-2018-046281

PATIENT

DRUGS (7)
  1. LETROZOLE. [Suspect]
     Active Substance: LETROZOLE
     Indication: BREAST CANCER METASTATIC
     Dosage: 2.5 MILLIGRAM, ONCE A DAY
     Route: 048
     Dates: start: 20180709
  2. KISQALI [Suspect]
     Active Substance: RIBOCICLIB
     Dosage: 400 MILLIGRAM, ONCE A DAY
     Route: 048
     Dates: start: 20181105, end: 20190529
  3. FERRO SANOL [Concomitant]
     Active Substance: FERROUS GLYCINE SULFATE
     Indication: ANAEMIA
     Dosage: 450 MILLIGRAM, ONCE A DAY (225 MG, BID)
     Route: 048
     Dates: start: 20180717
  4. KISQALI [Suspect]
     Active Substance: RIBOCICLIB
     Dosage: 600 MILLIGRAM, ONCE A DAY
     Route: 048
     Dates: start: 20181008, end: 20181104
  5. NICOTINIC ACID [Concomitant]
     Active Substance: NIACIN
     Indication: PRODUCT USED FOR UNKNOWN INDICATION
     Dosage: UNK
     Route: 065
  6. LETROZOLE. [Suspect]
     Active Substance: LETROZOLE
     Dosage: 2.5 MILLIGRAM, ONCE A DAY
     Route: 048
     Dates: start: 20181008, end: 20190529
  7. KISQALI [Suspect]
     Active Substance: RIBOCICLIB
     Indication: BREAST CANCER METASTATIC
     Dosage: 600 MILLIGRAM, ONCE A DAY,  21 DAYS INTAKE, 7 DAYS PAUSE
     Route: 048
     Dates: start: 20180709

REACTIONS (21)
  - Concomitant disease aggravated [Recovered/Resolved with Sequelae]
  - Chromaturia [Unknown]
  - Pleural effusion [Not Recovered/Not Resolved]
  - Weight decreased [Unknown]
  - Jaundice [Fatal]
  - Hepatic enzyme increased [Fatal]
  - Fatigue [Not Recovered/Not Resolved]
  - Constipation [Not Recovered/Not Resolved]
  - Aspartate aminotransferase increased [Not Recovered/Not Resolved]
  - C-reactive protein increased [Not Recovered/Not Resolved]
  - Infectious pleural effusion [Recovered/Resolved with Sequelae]
  - Dyspnoea [Not Recovered/Not Resolved]
  - Metastases to liver [Fatal]
  - Anaemia [Recovered/Resolved]
  - Multiple organ dysfunction syndrome [Fatal]
  - Glomerular filtration rate decreased [Recovering/Resolving]
  - Urinary retention [Recovered/Resolved with Sequelae]
  - Malignant peritoneal neoplasm [Fatal]
  - Decreased appetite [Not Recovered/Not Resolved]
  - Deep vein thrombosis [Not Recovered/Not Resolved]
  - Malignant neoplasm progression [Not Recovered/Not Resolved]

NARRATIVE: CASE EVENT DATE: 20180710
